FAERS Safety Report 12447317 (Version 1)
Quarter: 2016Q2

REPORT INFORMATION
  Report Type: Spontaneous
  Country: US (occurrence: None)
  Receive Date: 20160607
  Receipt Date: 20160607
  Transmission Date: 20160815
  Serious: No
  Sender: FDA-Public Use
  Company Number: None

PATIENT
  Age: 57 Year
  Sex: Female
  Weight: 70 kg

DRUGS (4)
  1. CALCIUM + VITAMIN D [Concomitant]
     Active Substance: CALCIUM\VITAMIN D
  2. NUMBING CREME, COMPOUNDED (LIDOCAINE, BENZOCAINE) LOCAL PHARMACY [Suspect]
     Active Substance: BENZOCAINE\LIDOCAINE HYDROCHLORIDE
     Indication: HYPOAESTHESIA
     Route: 061
     Dates: start: 20160303
  3. HRT (ESTROGEL) [Concomitant]
  4. VITAMIN C [Concomitant]
     Active Substance: ASCORBIC ACID

REACTIONS (2)
  - Application site reaction [None]
  - Dermatitis contact [None]

NARRATIVE: CASE EVENT DATE: 20160303
